FAERS Safety Report 14493563 (Version 1)
Quarter: 2018Q1

REPORT INFORMATION
  Report Type: Report from Study
  Country: JP (occurrence: JP)
  Receive Date: 20180206
  Receipt Date: 20180206
  Transmission Date: 20180509
  Serious: Yes (Hospitalization)
  Sender: FDA-Public Use
  Company Number: JP-DSJP-DSJ-2017-159004

PATIENT

DRUGS (41)
  1. MAGLAX [Concomitant]
     Active Substance: MAGNESIUM OXIDE
     Dosage: 660MG/DAY
     Route: 048
     Dates: end: 20160519
  2. DIART [Concomitant]
     Active Substance: AZOSEMIDE
     Dosage: 30MG/DAY
     Route: 048
     Dates: start: 20160520
  3. BIOFERMIN                          /01617201/ [Concomitant]
     Active Substance: BACILLUS SUBTILIS\LACTOBACILLUS ACIDOPHILUS\STREPTOCOCCUS FAECAIS
     Dosage: 2G/DAY
     Route: 048
     Dates: start: 20160408
  4. FERROMIA [Concomitant]
     Active Substance: SODIUM FERROUS CITRATE
     Dosage: 50MG/DAY
     Route: 048
     Dates: start: 20161014
  5. LOXOPROFEN NA [Concomitant]
     Active Substance: LOXOPROFEN SODIUM
     Dosage: UNK, QD
     Route: 050
     Dates: start: 20160411, end: 20160411
  6. SODIUM PICOSULFATE [Concomitant]
     Active Substance: SODIUM PICOSULFATE
     Dosage: 15 DROPS/DAY
     Route: 048
     Dates: start: 20160412, end: 20160413
  7. PARIET [Concomitant]
     Active Substance: RABEPRAZOLE SODIUM
     Dosage: 10MG/DAY
     Route: 048
     Dates: start: 20160408
  8. FEBURIC [Concomitant]
     Active Substance: FEBUXOSTAT
     Dosage: 10MG/DAY
     Route: 048
  9. DIART [Concomitant]
     Active Substance: AZOSEMIDE
     Dosage: 15MG/DAY
     Route: 048
     Dates: end: 20160519
  10. FLUITRAN [Concomitant]
     Active Substance: TRICHLORMETHIAZIDE
     Dosage: 1MG/DAY
     Route: 048
  11. MIDAZOLAM [Concomitant]
     Active Substance: MIDAZOLAM HYDROCHLORIDE
     Dosage: 1DF/DAY
     Route: 042
     Dates: start: 20160414, end: 20160414
  12. TRANSAMIN [Concomitant]
     Active Substance: TRANEXAMIC ACID
     Dosage: 750MG/DAY
     Route: 048
     Dates: start: 20160701, end: 20160705
  13. FERROUS CITRATE NA [Concomitant]
     Active Substance: SODIUM FERROUS CITRATE
     Dosage: 50MG/DAY
     Route: 048
     Dates: start: 20161016, end: 20161024
  14. EDOXABAN [Suspect]
     Active Substance: EDOXABAN TOSYLATE
     Indication: ATRIAL FIBRILLATION
     Dosage: 30 MG, QD
     Route: 048
     Dates: start: 20151219, end: 20160519
  15. ARTIST [Concomitant]
     Active Substance: CARVEDILOL
     Dosage: 5MG/DAY
     Route: 048
  16. TAKEPRON [Concomitant]
     Active Substance: LANSOPRAZOLE
     Dosage: 1DF/DAY
     Route: 042
     Dates: start: 20160411, end: 20160411
  17. ADONA                              /00056903/ [Concomitant]
     Active Substance: CARBAZOCHROME SODIUM SULFONATE
     Dosage: 1DF/DAY
     Route: 042
     Dates: start: 20161016, end: 20161016
  18. MOHRUS L [Concomitant]
     Active Substance: KETOPROFEN
     Dosage: UNK, QD
     Route: 050
     Dates: start: 20160408
  19. LASIX [Concomitant]
     Active Substance: FUROSEMIDE
     Dosage: 40MG/DAY
     Route: 048
     Dates: start: 20160520, end: 20160520
  20. ELIQUIS [Suspect]
     Active Substance: APIXABAN
     Dosage: 10MG/DAY
     Route: 048
     Dates: start: 20160520
  21. SELARA [Concomitant]
     Active Substance: EPLERENONE
     Dosage: 25MG/DAY
     Route: 048
  22. S.M.                               /00273401/ [Concomitant]
     Dosage: 3G/DAY
     Route: 048
     Dates: start: 20160408
  23. FERROMIA [Concomitant]
     Active Substance: SODIUM FERROUS CITRATE
     Dosage: 100MG/DAY
     Route: 048
     Dates: start: 20160408, end: 20161013
  24. MAGNESIUM OXIDE. [Concomitant]
     Active Substance: MAGNESIUM OXIDE
     Dosage: 660MG/DAY
     Route: 048
     Dates: start: 20160520
  25. OLOPATADINE HYDROCHLORIDE. [Concomitant]
     Active Substance: OLOPATADINE HYDROCHLORIDE
     Dosage: 10MG/DAY
     Route: 048
     Dates: start: 20161105
  26. TERPERAN [Concomitant]
     Active Substance: METOCLOPRAMIDE HYDROCHLORIDE
     Dosage: 1DF/DAY
     Route: 042
     Dates: start: 20160411, end: 20160411
  27. PROPOFOL. [Concomitant]
     Active Substance: PROPOFOL
     Dosage: 1DF/DAY
     Route: 042
     Dates: start: 20161025, end: 20161025
  28. LASIX [Concomitant]
     Active Substance: FUROSEMIDE
     Dosage: 40MG/DAY
     Route: 048
     Dates: start: 20161014, end: 20161014
  29. MUCODYNE [Concomitant]
     Active Substance: CARBOCYSTEINE
     Dosage: 1500MG/DAY
     Route: 048
     Dates: start: 20160701, end: 20160705
  30. ASTOMIN                            /00426502/ [Concomitant]
     Active Substance: DIMEMORFAN PHOSPHATE
     Dosage: 30MG/DAY
     Route: 048
     Dates: start: 20160701, end: 20160705
  31. RENIVACE [Concomitant]
     Active Substance: ENALAPRIL
     Dosage: 2.5MG/DAY
     Route: 048
  32. TAKECAB [Concomitant]
     Active Substance: VONOPRAZAN FUMURATE
     Dosage: 20MG/DAY
     Route: 048
     Dates: start: 20160412, end: 20160519
  33. LUNESTA [Concomitant]
     Active Substance: ESZOPICLONE
     Dosage: 2MG/DAY
     Route: 048
     Dates: start: 20160408
  34. LASIX [Concomitant]
     Active Substance: FUROSEMIDE
     Dosage: 40MG/DAY
     Route: 048
     Dates: start: 20160701, end: 20160701
  35. LASIX [Concomitant]
     Active Substance: FUROSEMIDE
     Dosage: 40MG/DAY
     Route: 048
     Dates: start: 20160819, end: 20160819
  36. CALONAL [Concomitant]
     Active Substance: ACETAMINOPHEN
     Dosage: 300MG/DAY
     Route: 048
     Dates: start: 20160701, end: 20160701
  37. FESIN                              /00023550/ [Concomitant]
     Active Substance: IRON SUCROSE
     Dosage: 2DF/DAY
     Route: 042
     Dates: start: 20160411, end: 20160411
  38. TRANSAMIN [Concomitant]
     Active Substance: TRANEXAMIC ACID
     Dosage: 1DF/DAY
     Route: 042
     Dates: start: 20161016, end: 20161016
  39. LAXOBERON [Concomitant]
     Active Substance: SODIUM PICOSULFATE
     Dosage: 10 DROPS/DAY
     Route: 048
     Dates: start: 20160408, end: 20160630
  40. CATLEP [Concomitant]
     Active Substance: INDOMETHACIN
     Dosage: UNK, QD
     Route: 050
     Dates: start: 20160412, end: 20160412
  41. FERROUS CITRATE NA [Concomitant]
     Active Substance: SODIUM FERROUS CITRATE
     Dosage: 50MG/DAY
     Route: 048
     Dates: start: 20161025, end: 20161107

REACTIONS (3)
  - Lower gastrointestinal haemorrhage [Recovering/Resolving]
  - Hyperammonaemia [Recovering/Resolving]
  - Upper gastrointestinal haemorrhage [Recovering/Resolving]

NARRATIVE: CASE EVENT DATE: 20160411
